FAERS Safety Report 11230215 (Version 1)
Quarter: 2015Q2

REPORT INFORMATION
  Report Type: Spontaneous
  Country: US (occurrence: None)
  Receive Date: 20150630
  Receipt Date: 20150630
  Transmission Date: 20150821
  Serious: Yes (Disabling)
  Sender: FDA-Public Use
  Company Number: None

PATIENT
  Age: 63 Year
  Sex: Male
  Weight: 104.33 kg

DRUGS (5)
  1. LEVOFLOXACIN 750 MG [Suspect]
     Active Substance: LEVOFLOXACIN
     Indication: BLEBITIS
     Dosage: 5 PILLS
     Route: 048
     Dates: start: 20150203, end: 20150208
  2. MAGNESIUM [Concomitant]
     Active Substance: MAGNESIUM
  3. FISH OIL [Concomitant]
     Active Substance: FISH OIL
  4. MULTIBLE VITAMIN [Concomitant]
  5. ERYTHROMYCIN  OPHTHALMIC OINTMENT USP 0.5% [Concomitant]
     Active Substance: ERYTHROMYCIN

REACTIONS (8)
  - Lethargy [None]
  - Disturbance in attention [None]
  - Suicidal ideation [None]
  - Paraesthesia [None]
  - Mental impairment [None]
  - Depression [None]
  - Insomnia [None]
  - Nightmare [None]

NARRATIVE: CASE EVENT DATE: 20150204
